FAERS Safety Report 7157289-8 (Version None)
Quarter: 2010Q4

REPORT INFORMATION
  Report Type: 
  Country: None (occurrence: None)
  Receive Date: 20101122
  Receipt Date: 20101108
  Transmission Date: 20110411
  Serious: No
  Sender: FDA-Public Use
  Company Number: US-145000

PATIENT
  Sex: Male
  Weight: 105.5974 kg

DRUGS (5)
  1. WINRHO SDF LIQUID [Suspect]
     Indication: IDIOPATHIC THROMBOCYTOPENIC PURPURA
     Dosage: (50.19 UG/KG 1X/4 MONTHS INTRAVENOUS (NOT OTHERWISE SPECIFIED))
     Route: 042
     Dates: start: 20100513, end: 20100513
  2. FERROUS SULFATE [Concomitant]
  3. CRESTOR [Concomitant]
  4. COZAAR [Concomitant]
  5. LIALDA [Concomitant]

REACTIONS (6)
  - ARTHRALGIA [None]
  - CHILLS [None]
  - INFUSION RELATED REACTION [None]
  - OXYGEN SATURATION DECREASED [None]
  - PAIN IN EXTREMITY [None]
  - PYREXIA [None]
